FAERS Safety Report 15606368 (Version 1)
Quarter: 2018Q4

REPORT INFORMATION
  Report Type: Spontaneous
  Country: US (occurrence: US)
  Receive Date: 20181106
  Receipt Date: 20181106
  Transmission Date: 20190205
  Serious: Yes (Death)
  Sender: FDA-Public Use
  Company Number: None

PATIENT
  Age: 60 Year
  Sex: Male
  Weight: 87.5 kg

DRUGS (2)
  1. PAZOPANIB (GW786034) (737754) [Suspect]
     Active Substance: PAZOPANIB
     Indication: DIABETES MELLITUS
  2. PAZOPANIB (GW786034) (737754) [Suspect]
     Active Substance: PAZOPANIB
     Indication: HYPERTENSION

REACTIONS (13)
  - Sepsis [None]
  - Fatigue [None]
  - Hyperkalaemia [None]
  - Acute kidney injury [None]
  - Hypoxia [None]
  - Asthenia [None]
  - Disorientation [None]
  - Vomiting [None]
  - Atrial fibrillation [None]
  - Hypotension [None]
  - Tachycardia [None]
  - Nausea [None]
  - Dehydration [None]

NARRATIVE: CASE EVENT DATE: 20181027
